FAERS Safety Report 26162387 (Version 1)
Quarter: 2025Q4

REPORT INFORMATION
  Report Type: Spontaneous
  Country: US (occurrence: US)
  Receive Date: 20251216
  Receipt Date: 20251216
  Transmission Date: 20260117
  Serious: Yes (Other)
  Sender: AMGEN
  Company Number: US-AMGEN-USASP2025244929

PATIENT
  Age: 37 Year
  Sex: Male

DRUGS (1)
  1. RITUXIMAB [Suspect]
     Active Substance: RITUXIMAB
     Indication: Central nervous system lesion
     Dosage: UNK
     Route: 065

REACTIONS (5)
  - Gliosarcoma [Unknown]
  - Headache [Unknown]
  - Vomiting [Unknown]
  - Aphasia [Unknown]
  - Off label use [Unknown]
